FAERS Safety Report 8950275 (Version 1)
Quarter: 2012Q4

REPORT INFORMATION
  Report Type: 
  Country: CN (occurrence: CN)
  Receive Date: 20121205
  Receipt Date: 20121205
  Transmission Date: 20130627
  Serious: Yes (Other)
  Sender: FDA-Public Use
  Company Number: PHHY2012CN107221

PATIENT
  Age: 60 Year
  Sex: Female
  Weight: 50 kg

DRUGS (4)
  1. GLIVEC [Suspect]
     Indication: GASTROINTESTINAL STROMAL TUMOUR
     Dosage: 0.4 g, once
     Route: 048
     Dates: start: 20090715, end: 20091103
  2. FUROSEMIDE [Concomitant]
     Dosage: 20 mg, daily
  3. SPIRONOLACTONE [Concomitant]
     Dosage: 20 mg, TID
     Route: 048
  4. METHYLPREDNISOLONE SODIUM SUCCINATE [Concomitant]
     Dosage: 80 mg, BID
     Route: 042

REACTIONS (9)
  - Asphyxia [Recovering/Resolving]
  - Interstitial lung disease [Recovering/Resolving]
  - Skin exfoliation [Recovering/Resolving]
  - Oedema peripheral [Recovering/Resolving]
  - Skin disorder [Recovering/Resolving]
  - Rash [Recovering/Resolving]
  - Oedema [Recovering/Resolving]
  - Face oedema [Recovering/Resolving]
  - Dry skin [Recovering/Resolving]
